FAERS Safety Report 7899674-2 (Version None)
Quarter: 2011Q4

REPORT INFORMATION
  Report Type: 
  Country: None (occurrence: None)
  Receive Date: 20111107
  Receipt Date: 20110916
  Transmission Date: 20120403
  Serious: No
  Sender: FDA-Public Use
  Company Number: US-AMGEN-USASP2011047821

PATIENT
  Age: 50 Year
  Sex: Female

DRUGS (2)
  1. ENBREL [Suspect]
     Indication: RHEUMATOID ARTHRITIS
     Dosage: 50 MG, QWK
     Dates: start: 20110610
  2. TREXALL [Concomitant]
     Dosage: 6 MG, QWK
     Dates: start: 20101201

REACTIONS (4)
  - PAIN IN EXTREMITY [None]
  - PARAESTHESIA [None]
  - DRUG INEFFECTIVE [None]
  - HYPOAESTHESIA [None]
